FAERS Safety Report 14158594 (Version 1)
Quarter: 2017Q4

REPORT INFORMATION
  Report Type: Spontaneous
  Country: FR (occurrence: FR)
  Receive Date: 20171103
  Receipt Date: 20171103
  Transmission Date: 20180321
  Serious: Yes (Life-Threatening)
  Sender: FDA-Public Use
  Company Number: FR-PFIZER INC-2017468274

PATIENT
  Age: 61 Year
  Sex: Male

DRUGS (3)
  1. DOCETAXEL. [Suspect]
     Active Substance: DOCETAXEL
     Indication: SQUAMOUS CELL CARCINOMA OF THE TONGUE
     Dosage: 120 MG, CYCLIC
     Route: 042
     Dates: start: 20170717, end: 20170807
  2. FLUOROURACILE PFIZER [Suspect]
     Active Substance: FLUOROURACIL
     Indication: SQUAMOUS CELL CARCINOMA OF THE TONGUE
     Dosage: 5950 MG, CYCLIC
     Route: 042
     Dates: start: 20170717, end: 20170807
  3. CISPLATINE ACCORD [Suspect]
     Active Substance: CISPLATIN
     Indication: SQUAMOUS CELL CARCINOMA OF THE TONGUE
     Dosage: 119 MG, CYCLIC
     Route: 042
     Dates: start: 20170717, end: 20170807

REACTIONS (4)
  - Febrile bone marrow aplasia [Recovered/Resolved]
  - Gastrointestinal disorder [Recovered/Resolved]
  - Pseudomonas infection [Recovered/Resolved]
  - Septic shock [Recovered/Resolved]

NARRATIVE: CASE EVENT DATE: 20170815
